FAERS Safety Report 23578825 (Version 1)
Quarter: 2024Q1

REPORT INFORMATION
  Report Type: Spontaneous
  Country: CN (occurrence: CN)
  Receive Date: 20240229
  Receipt Date: 20240229
  Transmission Date: 20240410
  Serious: Yes (Hospitalization, Other)
  Sender: FDA-Public Use
  Company Number: CN-CHEPLA-2024002523

PATIENT
  Age: 57 Year
  Sex: Male
  Weight: 50 kg

DRUGS (2)
  1. CAPECITABINE [Suspect]
     Active Substance: CAPECITABINE
     Indication: Colon cancer
     Dosage: 3 TABLETS BID WILL BE GIVEN FOR 1 COURSE OF 21 DAYS, AND THE PERIOD OF TAKING FOR 14 DAYS WILL BE...
     Route: 048
     Dates: start: 20230912
  2. CAPECITABINE [Suspect]
     Active Substance: CAPECITABINE
     Indication: Colon cancer
     Dosage: 2 TABLETS EVERY MORNING (QM), 3 TABLETS EVERY NIGHT (QN), 2 CAPSULES [14 TIMES EVERY 21 DAYS]
     Route: 048
     Dates: start: 20231031, end: 20240110

REACTIONS (2)
  - Osteonecrosis [Unknown]
  - Palmar-plantar erythrodysaesthesia syndrome [Unknown]

NARRATIVE: CASE EVENT DATE: 20240110
